FAERS Safety Report 5248437-5 (Version None)
Quarter: 2007Q1

REPORT INFORMATION
  Report Type: 
  Country: None (occurrence: None)
  Receive Date: 20070227
  Receipt Date: 20070219
  Transmission Date: 20070707
  Serious: Yes (Hospitalization, Other)
  Sender: FDA-Public Use
  Company Number: JP-MERCK-0702USA00807

PATIENT
  Age: 88 Year
  Sex: Female

DRUGS (11)
  1. FOSAMAX [Suspect]
     Indication: OSTEOPOROSIS
     Route: 048
     Dates: start: 20061107, end: 20070130
  2. ZOLPIDEM TARTRATE [Suspect]
     Indication: INSOMNIA
     Route: 048
     Dates: start: 20061107
  3. FLOMOX [Suspect]
     Indication: SYSTEMIC ANTIBACTERIAL THERAPY
     Route: 048
     Dates: start: 20061111
  4. PROPIVERINE HYDROCHLORIDE [Suspect]
     Indication: URINARY INCONTINENCE
     Route: 048
     Dates: start: 20061111
  5. MUCOSTA [Suspect]
     Indication: GASTROINTESTINAL DISORDER
     Route: 048
  6. TAKEPRON [Suspect]
     Indication: GASTROINTESTINAL DISORDER
     Route: 048
  7. LENDORMIN [Suspect]
     Indication: INSOMNIA
     Route: 048
     Dates: start: 20070117
  8. LOXONIN [Suspect]
     Route: 048
     Dates: start: 20061101, end: 20070215
  9. NAPAGELN [Suspect]
     Route: 061
     Dates: start: 20061107, end: 20070215
  10. BORRAZA G [Suspect]
     Route: 061
     Dates: start: 20061107, end: 20070215
  11. EPERISONE HYDROCHLORIDE [Suspect]
     Route: 048
     Dates: start: 20061107, end: 20070215

REACTIONS (7)
  - GASTRODUODENITIS [None]
  - HEPATIC FUNCTION ABNORMAL [None]
  - INSOMNIA [None]
  - ORAL INTAKE REDUCED [None]
  - PAIN IN EXTREMITY [None]
  - POLLAKIURIA [None]
  - VOMITING [None]
